FAERS Safety Report 6135276-6 (Version None)
Quarter: 2009Q1

REPORT INFORMATION
  Report Type: 
  Country: None (occurrence: None)
  Receive Date: 20090327
  Receipt Date: 20080617
  Transmission Date: 20090719
  Serious: No
  Sender: FDA-Public Use
  Company Number: US-TYCO HEALTHCARE/MALLINCKRODT-T200801027

PATIENT

DRUGS (13)
  1. OPTIMARK [Suspect]
     Indication: NUCLEAR MAGNETIC RESONANCE IMAGING
     Dosage: 15 ML (CC), SINGLE
     Route: 042
     Dates: start: 20080612, end: 20080612
  2. OPTIMARK [Suspect]
     Dosage: UNK, SINGLE
     Route: 042
     Dates: start: 20080616, end: 20080616
  3. SALINE                             /00075401/ [Concomitant]
     Dates: start: 20080612, end: 20080612
  4. CRESTOR [Concomitant]
  5. FOLIC ACID [Concomitant]
  6. COUMADIN [Concomitant]
  7. ENBREL [Concomitant]
  8. CELEBREX [Concomitant]
  9. TREXALL                            /00113802/ [Concomitant]
  10. TOPROL-XL [Concomitant]
  11. EVISTA [Concomitant]
  12. QUINAPRIL [Concomitant]
  13. IODIPINE                           /00948501/ [Concomitant]

REACTIONS (1)
  - DRUG INEFFECTIVE [None]
